FAERS Safety Report 14312336 (Version 1)
Quarter: 2017Q4

REPORT INFORMATION
  Report Type: Spontaneous
  Country: US (occurrence: US)
  Receive Date: 20171220
  Receipt Date: 20171220
  Transmission Date: 20180321
  Serious: Yes (Death, Hospitalization)
  Sender: FDA-Public Use
  Company Number: None

PATIENT
  Age: 75 Year
  Sex: Male
  Weight: 78.6 kg

DRUGS (1)
  1. TEMOZOLOMIDE. [Suspect]
     Active Substance: TEMOZOLOMIDE
     Dates: end: 20171010

REACTIONS (10)
  - Muscular weakness [None]
  - Pulse absent [None]
  - Pneumonia [None]
  - Cardiac arrest [None]
  - Encephalopathy [None]
  - Delirium [None]
  - Sepsis [None]
  - Unresponsive to stimuli [None]
  - Acute kidney injury [None]
  - Cardio-respiratory arrest [None]

NARRATIVE: CASE EVENT DATE: 20171206
